FAERS Safety Report 12936330 (Version 2)
Quarter: 2016Q4

REPORT INFORMATION
  Report Type: Spontaneous
  Country: FR (occurrence: FR)
  Receive Date: 20161114
  Receipt Date: 20161229
  Transmission Date: 20170207
  Serious: Yes (Hospitalization)
  Sender: FDA-Public Use
  Company Number: FR-JNJFOC-20161106410

PATIENT
  Age: 45 Year
  Sex: Female

DRUGS (9)
  1. MICROVAL [Concomitant]
     Active Substance: LEVONORGESTREL
     Route: 065
  2. TERCIAN [Suspect]
     Active Substance: CYAMEMAZINE
     Indication: ABNORMAL BEHAVIOUR
     Dosage: 0.5-0.5-1
     Route: 048
  3. SERESTA [Suspect]
     Active Substance: OXAZEPAM
     Indication: ABNORMAL BEHAVIOUR
     Route: 048
  4. TERCIAN [Suspect]
     Active Substance: CYAMEMAZINE
     Indication: ABNORMAL BEHAVIOUR
     Route: 048
  5. THERALENE [Suspect]
     Active Substance: TRIMEPRAZINE
     Indication: ABNORMAL BEHAVIOUR
     Route: 048
  6. VALIUM [Suspect]
     Active Substance: DIAZEPAM
     Indication: ABNORMAL BEHAVIOUR
     Dosage: 0.5-0-2
     Route: 048
  7. FORLAX [Concomitant]
     Active Substance: POLYETHYLENE GLYCOL 4000
     Route: 065
  8. HALDOL [Suspect]
     Active Substance: HALOPERIDOL
     Indication: ABNORMAL BEHAVIOUR
     Dosage: 4 DF (2 DF, 2 IN 1 DAY)
     Route: 048
     Dates: end: 20161005
  9. LEPTICUR [Suspect]
     Active Substance: TROPATEPINE HYDROCHLORIDE
     Indication: ABNORMAL BEHAVIOUR
     Route: 048
     Dates: end: 20161006

REACTIONS (4)
  - Gait disturbance [Recovered/Resolved]
  - Balance disorder [Recovered/Resolved]
  - Psychomotor skills impaired [Recovered/Resolved]
  - Somnolence [Recovered/Resolved]

NARRATIVE: CASE EVENT DATE: 20161001
